FAERS Safety Report 7860793-8 (Version None)
Quarter: 2011Q4

REPORT INFORMATION
  Report Type: 
  Country: None (occurrence: None)
  Receive Date: 20111027
  Receipt Date: 20111014
  Transmission Date: 20120403
  Serious: Yes (Hospitalization)
  Sender: FDA-Public Use
  Company Number: US-BAYER-201021700NA

PATIENT
  Age: 40 Year
  Sex: Female
  Weight: 91 kg

DRUGS (12)
  1. YASMIN [Suspect]
     Indication: MENSTRUAL CYCLE MANAGEMENT
  2. ZYRTEC [Concomitant]
  3. AMBIEN [Concomitant]
  4. YASMIN [Suspect]
     Indication: CONTRACEPTION
     Route: 048
     Dates: start: 20060801, end: 20061001
  5. NASONEX [Concomitant]
     Dosage: UNK
     Dates: start: 20020101
  6. THYROID TAB [Concomitant]
     Indication: HYPOTHYROIDISM
  7. CITALOPRAM HYDROBROMIDE [Concomitant]
  8. RHINOCORT [Concomitant]
  9. PROGESTERONE [Concomitant]
     Dosage: UNK
     Dates: start: 20060107
  10. IBUPROFEN [Concomitant]
     Dosage: UNK
     Dates: start: 20000101, end: 20060101
  11. SYNTHROID [Concomitant]
     Indication: HYPOTHYROIDISM
  12. DIFLUCAN [Concomitant]

REACTIONS (3)
  - THROMBOPHLEBITIS [None]
  - PULMONARY EMBOLISM [None]
  - DEEP VEIN THROMBOSIS [None]
